FAERS Safety Report 7449862-4 (Version None)
Quarter: 2011Q2

REPORT INFORMATION
  Report Type: 
  Country: None (occurrence: None)
  Receive Date: 20110428
  Receipt Date: 20110428
  Transmission Date: 20111010
  Serious: Yes (Other)
  Sender: FDA-Public Use
  Company Number: None

PATIENT
  Sex: Female
  Weight: 73.4827 kg

DRUGS (2)
  1. ZOLPIDEM [Suspect]
     Indication: MIDDLE INSOMNIA
     Dosage: ZOLPIDEM 10MG  2 24 HRS AT BEDTIME P.O.
     Route: 048
     Dates: start: 20101001, end: 20110228
  2. LOESTRIN 24 FE [Concomitant]

REACTIONS (7)
  - PARAESTHESIA [None]
  - BURNING SENSATION [None]
  - PAIN IN JAW [None]
  - DISCOMFORT [None]
  - PAIN IN EXTREMITY [None]
  - HYPOAESTHESIA FACIAL [None]
  - HYPOAESTHESIA [None]
